FAERS Safety Report 9758624 (Version 1)
Quarter: 2013Q4

REPORT INFORMATION
  Report Type: Spontaneous
  Country: US (occurrence: None)
  Receive Date: 20131216
  Receipt Date: 20131216
  Transmission Date: 20140711
  Serious: Yes (Other)
  Sender: FDA-Public Use
  Company Number: RB-50043-2013

PATIENT
  Age: 46 Year
  Sex: Male

DRUGS (2)
  1. SUBOXONE [Suspect]
     Indication: PRODUCT USED FOR UNKNOWN INDICATION
     Dosage: (DOSAGE DETAILS NOT SPECIFIED. UNKNOWN)
  2. SUBOXONE [Suspect]
     Indication: PRODUCT USED FOR UNKNOWN INDICATION
     Dosage: (SUBOXONE FILM (DOSAGE DETAILS NOT SPECIFIED) UNKNOWN)

REACTIONS (3)
  - Malaise [None]
  - Tongue disorder [None]
  - Substance abuse [None]
